FAERS Safety Report 17134327 (Version 1)
Quarter: 2019Q4

REPORT INFORMATION
  Report Type: Spontaneous
  Country: US (occurrence: US)
  Receive Date: 20191119
  Receipt Date: 20191119
  Transmission Date: 20200122
  Serious: Yes (Hospitalization)
  Sender: FDA-Public Use
  Company Number: None

PATIENT
  Age: 45 Year
  Sex: Male

DRUGS (3)
  1. CALCIUM GLUCONATE. [Concomitant]
     Active Substance: CALCIUM GLUCONATE
  2. DEXTROSE. [Concomitant]
     Active Substance: DEXTROSE
  3. LISINOPRIL. [Suspect]
     Active Substance: LISINOPRIL
     Indication: HYPERTENSION
     Route: 048
     Dates: start: 20190314, end: 20191030

REACTIONS (4)
  - Blood creatinine increased [None]
  - Hyperkalaemia [None]
  - Blood urea increased [None]
  - Blood glucose decreased [None]

NARRATIVE: CASE EVENT DATE: 20191030
